FAERS Safety Report 5551408-2 (Version None)
Quarter: 2007Q4

REPORT INFORMATION
  Report Type: 
  Country: None (occurrence: None)
  Receive Date: 20071212
  Receipt Date: 20071119
  Transmission Date: 20080405
  Serious: Yes (Hospitalization)
  Sender: FDA-Public Use
  Company Number: FR-ROCHE-532567

PATIENT
  Age: 57 Year
  Sex: Female

DRUGS (7)
  1. CELLCEPT [Suspect]
     Indication: RENAL TRANSPLANT
     Route: 048
     Dates: end: 20070328
  2. INEXIUM [Suspect]
     Indication: DRUG USE FOR UNKNOWN INDICATION
     Route: 048
     Dates: end: 20070328
  3. ZELITREX [Suspect]
     Indication: DRUG USE FOR UNKNOWN INDICATION
     Route: 048
     Dates: end: 20070328
  4. ZELITREX [Suspect]
     Route: 048
  5. BACTRIM [Concomitant]
     Route: 048
     Dates: end: 20070328
  6. PREDNISONE TAB [Concomitant]
     Route: 048
  7. PROGRAF [Concomitant]
     Route: 048

REACTIONS (2)
  - CYTOLYTIC HEPATITIS [None]
  - LEUKOPENIA [None]
